FAERS Safety Report 22768016 (Version 4)
Quarter: 2024Q2

REPORT INFORMATION
  Report Type: Spontaneous
  Country: US (occurrence: US)
  Receive Date: 20230731
  Receipt Date: 20240429
  Transmission Date: 20240716
  Serious: No
  Sender: FDA-Public Use
  Company Number: US-SA-SAC20230726001206

PATIENT
  Age: 10 Month
  Sex: Male

DRUGS (8)
  1. ALPROLIX [Suspect]
     Active Substance: EFTRENONACOG ALFA
     Indication: Factor IX deficiency
     Dosage: 660 U (660-798), QW FOR FOR PROPHYLAXIS
     Route: 042
     Dates: start: 202303
  2. ALPROLIX [Suspect]
     Active Substance: EFTRENONACOG ALFA
     Indication: Factor IX deficiency
     Dosage: 660 U (660-798), QW FOR FOR PROPHYLAXIS
     Route: 042
     Dates: start: 202303
  3. ALPROLIX [Suspect]
     Active Substance: EFTRENONACOG ALFA
     Dosage: 660 U (660-798), ONCE DAILY AS NEEDED (PRN) FOR BLEEDING EPISODES
     Route: 042
     Dates: start: 202303
  4. ALPROLIX [Suspect]
     Active Substance: EFTRENONACOG ALFA
     Dosage: 660 U (660-798), ONCE DAILY AS NEEDED (PRN) FOR BLEEDING EPISODES
     Route: 042
     Dates: start: 202303
  5. ALPROLIX [Suspect]
     Active Substance: EFTRENONACOG ALFA
     Dosage: 540 U, QW
     Route: 042
     Dates: start: 202304
  6. ALPROLIX [Suspect]
     Active Substance: EFTRENONACOG ALFA
     Dosage: 540 U, QW
     Route: 042
     Dates: start: 202304
  7. ALPROLIX [Suspect]
     Active Substance: EFTRENONACOG ALFA
     Dosage: 540 U, PRN
     Route: 042
     Dates: start: 202304
  8. ALPROLIX [Suspect]
     Active Substance: EFTRENONACOG ALFA
     Dosage: 540 U, PRN
     Route: 042
     Dates: start: 202304

REACTIONS (11)
  - Contusion [Unknown]
  - Traumatic haemorrhage [Unknown]
  - Fall [Unknown]
  - Tooth injury [Unknown]
  - Face injury [Unknown]
  - Haematoma [Recovered/Resolved]
  - Bone contusion [Unknown]
  - Contusion [Unknown]
  - Fall [Unknown]
  - Product administered to patient of inappropriate age [Unknown]
  - Treatment noncompliance [Unknown]

NARRATIVE: CASE EVENT DATE: 20230101
